FAERS Safety Report 25951600 (Version 1)
Quarter: 2025Q4

REPORT INFORMATION
  Report Type: Spontaneous
  Country: US (occurrence: US)
  Receive Date: 20251023
  Receipt Date: 20251023
  Transmission Date: 20260118
  Serious: No
  Sender: LEO PHARM
  Company Number: US-LEO Pharma-383599

PATIENT
  Age: 15 Year
  Sex: Female

DRUGS (1)
  1. ADBRY [Suspect]
     Active Substance: TRALOKINUMAB-LDRM
     Indication: Dermatitis atopic
     Dosage: 300 MG UNDER THE SKIN ON DAY 1, THEN START MAINTENANCE DOSING AS DIRECTED ON DAY 15; TREATMENT IS ON
     Route: 058
     Dates: start: 202510

REACTIONS (1)
  - Rash [Unknown]
